FAERS Safety Report 23370009 (Version 1)
Quarter: 2024Q1

REPORT INFORMATION
  Report Type: Spontaneous
  Country: US (occurrence: None)
  Receive Date: 20240104
  Receipt Date: 20240104
  Transmission Date: 20240410
  Serious: No
  Sender: FDA-Public Use
  Company Number: None

PATIENT
  Age: 45 Year
  Sex: Female
  Weight: 65.25 kg

DRUGS (2)
  1. AMOXICILLIN\CLAVULANATE POTASSIUM [Suspect]
     Active Substance: AMOXICILLIN\CLAVULANATE POTASSIUM
     Indication: Sinusitis
     Dosage: OTHER QUANTITY : 1 TABLET(S);?FREQUENCY : TWICE A DAY;?
     Route: 048
     Dates: start: 20240103, end: 20240103
  2. AMOXICILLIN\CLAVULANATE POTASSIUM [Suspect]
     Active Substance: AMOXICILLIN\CLAVULANATE POTASSIUM
     Indication: Tooth infection

REACTIONS (16)
  - Dyspnoea [None]
  - Chest discomfort [None]
  - Muscle tightness [None]
  - Asthenia [None]
  - Abdominal discomfort [None]
  - Decreased appetite [None]
  - Dyspepsia [None]
  - Abdominal discomfort [None]
  - Burning sensation [None]
  - Flushing [None]
  - Body temperature increased [None]
  - Paraesthesia [None]
  - Throat tightness [None]
  - Wheezing [None]
  - Cough [None]
  - Heart rate irregular [None]

NARRATIVE: CASE EVENT DATE: 20240103
